FAERS Safety Report 8346231-X (Version None)
Quarter: 2012Q2

REPORT INFORMATION
  Report Type: 
  Country: None (occurrence: None)
  Receive Date: 20120509
  Receipt Date: 20120501
  Transmission Date: 20120825
  Serious: Yes (Other)
  Sender: FDA-Public Use
  Company Number: US-US-EMD SERONO, INC.-7129937

PATIENT
  Sex: Male

DRUGS (3)
  1. REBIF [Suspect]
     Indication: MULTIPLE SCLEROSIS
     Route: 058
     Dates: start: 20021010
  2. REBIF [Suspect]
     Route: 058
  3. ACTOS [Concomitant]
     Indication: TYPE 2 DIABETES MELLITUS

REACTIONS (7)
  - DIPLOPIA [None]
  - CENTRAL NERVOUS SYSTEM LESION [None]
  - PYREXIA [None]
  - FATIGUE [None]
  - RENAL CANCER [None]
  - FEELING ABNORMAL [None]
  - VERTIGO [None]
